FAERS Safety Report 14343124 (Version 1)
Quarter: 2017Q4

REPORT INFORMATION
  Report Type: Spontaneous
  Country: US (occurrence: US)
  Receive Date: 20171231
  Receipt Date: 20171231
  Transmission Date: 20180321
  Serious: No
  Sender: FDA-Public Use
  Company Number: None

PATIENT
  Age: 15 Year
  Sex: Male
  Weight: 58.5 kg

DRUGS (2)
  1. ALLEGRA [Concomitant]
     Active Substance: FEXOFENADINE HYDROCHLORIDE
  2. METHYLPHENIDATE ER 36 MG TAB [Suspect]
     Active Substance: METHYLPHENIDATE HYDROCHLORIDE
     Indication: ATTENTION DEFICIT/HYPERACTIVITY DISORDER
     Dosage: ?          QUANTITY:1 TABLET(S);?
     Route: 048
     Dates: start: 20171224, end: 20171230

REACTIONS (7)
  - Mental disability [None]
  - Drug ineffective [None]
  - Product substitution issue [None]
  - Abnormal behaviour [None]
  - Affect lability [None]
  - Anxiety [None]
  - Dyskinesia [None]

NARRATIVE: CASE EVENT DATE: 20171224
